FAERS Safety Report 6910720-2 (Version None)
Quarter: 2010Q3

REPORT INFORMATION
  Report Type: 
  Country: None (occurrence: None)
  Receive Date: 20100806
  Receipt Date: 20100728
  Transmission Date: 20110219
  Serious: Yes (Death, Hospitalization, Other)
  Sender: FDA-Public Use
  Company Number: CH-BAYER-201034648GPV

PATIENT
  Age: 49 Year
  Sex: Female

DRUGS (15)
  1. PREDNISONE [Suspect]
     Indication: HODGKIN'S DISEASE RECURRENT
     Dosage: SEVEN CYCLES
  2. FLUDARABINE [Suspect]
     Indication: HODGKIN'S DISEASE
  3. BLEOMYCIN SULFATE [Suspect]
     Indication: HODGKIN'S DISEASE RECURRENT
     Dosage: SEVEN CYCLES
  4. DOXORUBICIN HCL [Suspect]
     Indication: HODGKIN'S DISEASE RECURRENT
     Dosage: SEVEN CYCLES
  5. CYCLOSPORINE [Suspect]
     Indication: HODGKIN'S DISEASE RECURRENT
     Dosage: SEVEN CYCLES
  6. VINCRISTINE [Suspect]
     Indication: HODGKIN'S DISEASE RECURRENT
     Dosage: SEVEN CYCLES
  7. PROCARBAZINE HYDROCHLORIDE [Suspect]
     Indication: HODGKIN'S DISEASE RECURRENT
     Dosage: SEVEN CYCLES
  8. MELPHALAN [Suspect]
     Indication: HODGKIN'S DISEASE
  9. ANTI-LYMPHOCYTES SERUM [Suspect]
     Indication: HODGKIN'S DISEASE
  10. ALBENDAZOLE [Concomitant]
     Indication: MICROSPORIDIA INFECTION
     Route: 048
  11. ALBENDAZOLE [Concomitant]
     Route: 048
  12. ALBENDAZOLE [Concomitant]
     Route: 048
  13. IMMUNE CELLS HUMAN [Concomitant]
     Dosage: 5 X 10E6 CD3 PER KG A WEEK LATER
  14. IMMUNE CELLS HUMAN [Concomitant]
     Dosage: 5 X 10E5 CD3 PER KG AT CONDITIONING
  15. IMMUNE CELLS HUMAN [Concomitant]
     Dosage: 1 X 10E6 CD3 PER KG AT DIAGNOSIS

REACTIONS (14)
  - ACUTE GRAFT VERSUS HOST DISEASE [None]
  - ACUTE GRAFT VERSUS HOST DISEASE IN LIVER [None]
  - AGRANULOCYTOSIS [None]
  - CONFUSIONAL STATE [None]
  - CYTOMEGALOVIRUS INFECTION [None]
  - DEVICE RELATED INFECTION [None]
  - DIARRHOEA [None]
  - DYSPNOEA [None]
  - IMMUNOSUPPRESSION [None]
  - MICROSPORUM INFECTION [None]
  - NEUTROPENIA [None]
  - PULMONARY MYCOSIS [None]
  - PYREXIA [None]
  - STAPHYLOCOCCAL INFECTION [None]
